FAERS Safety Report 9690805 (Version 3)
Quarter: 2014Q1

REPORT INFORMATION
  Report Type: Spontaneous
  Country: US (occurrence: US)
  Receive Date: 20131115
  Receipt Date: 20140113
  Transmission Date: 20141002
  Serious: Yes (Other)
  Sender: FDA-Public Use
  Company Number: US-JNJFOC-20131104371

PATIENT
  Age: 57 Year
  Sex: Female

DRUGS (1)
  1. STELARA [Suspect]
     Indication: PSORIASIS
     Dosage: APPROXIMATELY 15 INJECTIONS RECEIVED TOTALLY
     Route: 058
     Dates: start: 20100601

REACTIONS (4)
  - Hepatic enzyme increased [Recovered/Resolved]
  - Blood sodium decreased [Unknown]
  - Blood chloride decreased [Unknown]
  - Blood urea nitrogen/creatinine ratio increased [Unknown]
